FAERS Safety Report 9894778 (Version 2)
Quarter: 2014Q1

REPORT INFORMATION
  Report Type: Report from Study
  Country: US (occurrence: US)
  Receive Date: 20140213
  Receipt Date: 20140225
  Transmission Date: 20141002
  Serious: Yes (Hospitalization)
  Sender: FDA-Public Use
  Company Number: US-ACTELION-A-US2014-94667

PATIENT
  Age: 59 Year
  Sex: Female

DRUGS (2)
  1. VELETRI [Suspect]
     Indication: COR PULMONALE CHRONIC
     Dosage: 8 NG/KG, UNK
     Route: 042
     Dates: start: 20140123
  2. COUMADIN [Concomitant]

REACTIONS (2)
  - Renal disorder [Unknown]
  - Device misuse [Unknown]
